FAERS Safety Report 20744024 (Version 2)
Quarter: 2022Q2

REPORT INFORMATION
  Report Type: Spontaneous
  Country: US (occurrence: None)
  Receive Date: 20220425
  Receipt Date: 20220513
  Transmission Date: 20220721
  Serious: No
  Sender: FDA-Public Use
  Company Number: 2022A139553

PATIENT
  Sex: Female
  Weight: 87.1 kg

DRUGS (2)
  1. BUDESONIDE\FORMOTEROL\GLYCOPYRRONIUM [Suspect]
     Active Substance: BUDESONIDE\FORMOTEROL\GLYCOPYRRONIUM
     Indication: Chronic obstructive pulmonary disease
     Dosage: 160/7.2/5.0?G - 2 PUFFS, TWO TIMES A DAY
     Route: 055
     Dates: start: 2021
  2. ROSUVASTATIN [Concomitant]
     Active Substance: ROSUVASTATIN
     Route: 048

REACTIONS (5)
  - Retching [Unknown]
  - Drug dose omission by device [Unknown]
  - Device malfunction [Unknown]
  - Intentional device misuse [Unknown]
  - Device leakage [Unknown]
